FAERS Safety Report 16838290 (Version 2)
Quarter: 2020Q2

REPORT INFORMATION
  Report Type: Report from Study
  Country: FR (occurrence: FR)
  Receive Date: 20190923
  Receipt Date: 20200407
  Transmission Date: 20200713
  Serious: Yes (Hospitalization)
  Sender: FDA-Public Use
  Company Number: FR-ROCHE-2405536

PATIENT
  Age: 72 Year
  Sex: Female

DRUGS (13)
  1. BLINDED ATEZOLIZUMAB [Suspect]
     Active Substance: ATEZOLIZUMAB
     Indication: OVARIAN CANCER
     Dosage: ON 13/MAY/2019, THE PATIENT RECEIVED LAST DOSE OF BLINDED ATEZOLIZUMAB BEFORE THE EVENT.
     Route: 042
     Dates: start: 20190201, end: 20190513
  2. OMEPRAZOLE. [Concomitant]
     Active Substance: OMEPRAZOLE
  3. BEVACIZUMAB. [Suspect]
     Active Substance: BEVACIZUMAB
     Indication: OVARIAN CANCER
     Dosage: ON 13/MAY/2019, THE PATIENT RECEIVED LAST DOSE OF BEVACIZUMAB (10 MG/KG) BEFORE THE EVENT.
     Route: 042
     Dates: start: 20190201, end: 20190513
  4. CARBOPLATIN. [Suspect]
     Active Substance: CARBOPLATIN
     Indication: OVARIAN CANCER
     Dosage: 469 MG EVERY 1 CYCLE
     Route: 042
     Dates: start: 20190201, end: 20190430
  5. PEGYLATED LIPOSOMAL DOXORUBICIN [Concomitant]
     Active Substance: DOXORUBICIN
     Route: 065
     Dates: start: 20190527, end: 20190701
  6. HYDROCHLOROTHIAZIDE. [Concomitant]
     Active Substance: HYDROCHLOROTHIAZIDE
  7. CARBOPLATIN. [Concomitant]
     Active Substance: CARBOPLATIN
     Route: 065
     Dates: start: 20190527, end: 20190701
  8. BISOPROLOL [Concomitant]
     Active Substance: BISOPROLOL
  9. LERCAN [Concomitant]
     Active Substance: LERCANIDIPINE
  10. CAELYX [Suspect]
     Active Substance: DOXORUBICIN HYDROCHLORIDE
     Indication: OVARIAN CANCER
     Dosage: 30 MILLIGRAM PER SQUARE METER EVERY 1 CYCLE
     Route: 042
     Dates: start: 20190201, end: 20190513
  11. RAMIPRIL. [Concomitant]
     Active Substance: RAMIPRIL
  12. INEGY [Concomitant]
     Active Substance: EZETIMIBE\SIMVASTATIN
  13. AERIUS (DESLORATADINE) [Concomitant]
     Active Substance: DESLORATADINE

REACTIONS (3)
  - Bronchitis [Recovered/Resolved]
  - Pyrexia [Recovered/Resolved]
  - Thrombocytopenia [Recovered/Resolved]

NARRATIVE: CASE EVENT DATE: 20190516
